FAERS Safety Report 18975993 (Version 1)
Quarter: 2021Q1

REPORT INFORMATION
  Report Type: Spontaneous
  Country: FR (occurrence: FR)
  Receive Date: 20210306
  Receipt Date: 20210306
  Transmission Date: 20210420
  Serious: Yes (Other)
  Sender: FDA-Public Use
  Company Number: FR-AUROBINDO-AUR-APL-2021-004405

PATIENT
  Age: 62 Year
  Sex: Female

DRUGS (13)
  1. FLUCONAZOLE. [Suspect]
     Active Substance: FLUCONAZOLE
     Indication: SEPSIS
     Dosage: 400 MILLIGRAM, ONCE A DAY
     Route: 041
     Dates: start: 20201022, end: 20201028
  2. MOTILIUM [Suspect]
     Active Substance: DOMPERIDONE
     Indication: NAUSEA
     Dosage: SI BESOIN
     Route: 048
     Dates: start: 20201022
  3. TAZOBACTAM [Suspect]
     Active Substance: TAZOBACTAM
     Indication: SEPSIS
     Dosage: 4G/500MG 2/JRS
     Route: 041
     Dates: start: 20200926, end: 20201022
  4. MYCAMINE [Suspect]
     Active Substance: MICAFUNGIN SODIUM
     Indication: CANDIDA SEPSIS
     Dosage: 100 MILLIGRAM, ONCE A DAY
     Route: 041
     Dates: start: 20201006, end: 20201022
  5. PANTOPRAZOLE [Suspect]
     Active Substance: PANTOPRAZOLE
     Indication: PRODUCT USED FOR UNKNOWN INDICATION
     Dosage: 40 MILLIGRAM, ONCE A DAY
     Route: 048
     Dates: start: 20200924, end: 20201025
  6. LINEZOLIDE [Suspect]
     Active Substance: LINEZOLID
     Indication: SEPSIS
     Dosage: 1200 MILLIGRAM, ONCE A DAY
     Route: 041
     Dates: start: 20201022, end: 20201027
  7. MEROPENEM. [Suspect]
     Active Substance: MEROPENEM
     Indication: SEPSIS
     Dosage: UNK
     Route: 041
     Dates: start: 20201006, end: 20201020
  8. VANCOMYCINE [Suspect]
     Active Substance: VANCOMYCIN
     Indication: INFECTION
     Dosage: 2 GRAM, ONCE A DAY
     Route: 041
     Dates: start: 20200926, end: 20201006
  9. TAZOCILLINE [Suspect]
     Active Substance: PIPERACILLIN SODIUM\TAZOBACTAM SODIUM
     Indication: PRODUCT USED FOR UNKNOWN INDICATION
     Dosage: UNK
     Route: 048
     Dates: start: 20200926
  10. ONDANSETRON [Suspect]
     Active Substance: ONDANSETRON
     Indication: NAUSEA
     Dosage: 12 MILLIGRAM, ONCE A DAY
     Route: 041
     Dates: start: 20201022, end: 20201103
  11. OCTREOTIDE. [Suspect]
     Active Substance: OCTREOTIDE
     Indication: FISTULA
     Dosage: 600 MICROGRAM, ONCE A DAY
     Route: 041
     Dates: start: 20200924
  12. OCTREOTIDE. [Suspect]
     Active Substance: OCTREOTIDE
     Dosage: UNK
     Route: 048
     Dates: start: 20200924
  13. PIPERACILLINE [Suspect]
     Active Substance: PIPERACILLIN SODIUM
     Indication: SEPSIS
     Dosage: 4G/500MG 2/JRS
     Route: 041
     Dates: start: 20200926, end: 20201022

REACTIONS (2)
  - Rash morbilliform [Not Recovered/Not Resolved]
  - Dermatitis exfoliative generalised [Not Recovered/Not Resolved]

NARRATIVE: CASE EVENT DATE: 20201025
